FAERS Safety Report 10606576 (Version 1)
Quarter: 2014Q4

REPORT INFORMATION
  Report Type: Spontaneous
  Country: US (occurrence: None)
  Receive Date: 20141124
  Receipt Date: 20141124
  Transmission Date: 20150529
  Serious: Yes (Hospitalization)
  Sender: FDA-Public Use
  Company Number: None

PATIENT
  Age: 56 Year
  Sex: Female
  Weight: 83.92 kg

DRUGS (1)
  1. DULOXETINE [Suspect]
     Active Substance: DULOXETINE
     Indication: DEPRESSION
     Dosage: ONE CAPSULE, ONCE DAILY
     Route: 048
     Dates: start: 20140926, end: 20141102

REACTIONS (12)
  - Eye disorder [None]
  - Ileus [None]
  - No therapeutic response [None]
  - Drug withdrawal syndrome [None]
  - Clumsiness [None]
  - Paraesthesia [None]
  - Constipation [None]
  - Emotional disorder [None]
  - Hypersomnia [None]
  - Malaise [None]
  - Small intestinal obstruction [None]
  - Gait disturbance [None]

NARRATIVE: CASE EVENT DATE: 20141120
